FAERS Safety Report 19538867 (Version 1)
Quarter: 2021Q3

REPORT INFORMATION
  Report Type: Spontaneous
  Country: JP (occurrence: JP)
  Receive Date: 20210714
  Receipt Date: 20210714
  Transmission Date: 20211014
  Serious: Yes (Other)
  Sender: FDA-Public Use
  Company Number: JP-SAKK-2021SA225987AA

PATIENT
  Age: 69 Year
  Sex: Male

DRUGS (9)
  1. SARCLISA [Suspect]
     Active Substance: ISATUXIMAB-IRFC
     Dosage: 640 MG, QW
     Route: 041
     Dates: start: 202012, end: 202012
  2. SARCLISA [Suspect]
     Active Substance: ISATUXIMAB-IRFC
     Dosage: 640 MG, QW
     Route: 041
     Dates: start: 202101, end: 202101
  3. POMALIDOMIDE [Concomitant]
     Active Substance: POMALIDOMIDE
     Indication: PLASMA CELL MYELOMA
     Dosage: 3 MG ON DAY 1 ? 21
     Route: 065
     Dates: start: 202012, end: 202012
  4. POMALIDOMIDE [Concomitant]
     Active Substance: POMALIDOMIDE
     Dosage: 3 MG ON DAY 1 ? 21
     Route: 065
     Dates: start: 202101, end: 202101
  5. POMALIDOMIDE [Concomitant]
     Active Substance: POMALIDOMIDE
     Dosage: 3 MG ON DAY 1 ? 21
     Route: 065
     Dates: start: 202102, end: 202102
  6. DEXAMETHASONE. [Concomitant]
     Active Substance: DEXAMETHASONE
     Indication: PLASMA CELL MYELOMA
     Dosage: 20 MG (DAY 1, 8, 15, 22), QW
     Route: 065
     Dates: start: 202012, end: 202012
  7. DEXAMETHASONE. [Concomitant]
     Active Substance: DEXAMETHASONE
     Dosage: 20 MG, QW
     Route: 065
     Dates: start: 202101, end: 202101
  8. SARCLISA [Suspect]
     Active Substance: ISATUXIMAB-IRFC
     Indication: PLASMA CELL MYELOMA
     Dosage: 640 MG, QOW
     Route: 041
     Dates: start: 202102, end: 202102
  9. DEXAMETHASONE. [Concomitant]
     Active Substance: DEXAMETHASONE
     Dosage: 20 MG, QW
     Route: 065
     Dates: start: 202102, end: 202102

REACTIONS (8)
  - Infusion related reaction [Recovered/Resolved]
  - Spinal compression fracture [Unknown]
  - Back pain [Unknown]
  - Nausea [Recovered/Resolved]
  - Cold sweat [Recovered/Resolved]
  - Pain [Unknown]
  - Osteolysis [Unknown]
  - Blood pressure decreased [Recovered/Resolved]

NARRATIVE: CASE EVENT DATE: 202012
